FAERS Safety Report 17574655 (Version 1)
Quarter: 2020Q1

REPORT INFORMATION
  Report Type: Report from Study
  Country: US (occurrence: US)
  Receive Date: 20200324
  Receipt Date: 20200324
  Transmission Date: 20200409
  Serious: Yes (Other)
  Sender: FDA-Public Use
  Company Number: US-ROCHE-2567430

PATIENT
  Age: 74 Year
  Sex: Female

DRUGS (1)
  1. AVASTIN [Suspect]
     Active Substance: BEVACIZUMAB
     Indication: PRODUCT USED FOR UNKNOWN INDICATION
     Route: 050
     Dates: start: 201811, end: 201902

REACTIONS (3)
  - Product use in unapproved indication [Unknown]
  - Blindness unilateral [Unknown]
  - Off label use [Unknown]

NARRATIVE: CASE EVENT DATE: 201811
